FAERS Safety Report 8784279 (Version 1)
Quarter: 2012Q4

REPORT INFORMATION
  Report Type: 
  Country: CN (occurrence: CN)
  Receive Date: 20120913
  Receipt Date: 20120913
  Transmission Date: 20130627
  Serious: Yes (Hospitalization)
  Sender: FDA-Public Use
  Company Number: CN-BRISTOL-MYERS SQUIBB COMPANY-16854390

PATIENT
  Age: 77 Year
  Sex: Male
  Weight: 47 kg

DRUGS (2)
  1. METFORMIN HCL [Suspect]
     Indication: DIABETES MELLITUS
     Route: 048
     Dates: start: 20100610, end: 20100625
  2. GLIPIZIDE [Suspect]
     Dosage: 5mg/10mg
     Route: 048

REACTIONS (1)
  - Hypoglycaemic coma [Recovering/Resolving]
